FAERS Safety Report 7378309-1 (Version None)
Quarter: 2011Q1

REPORT INFORMATION
  Report Type: 
  Country: None (occurrence: None)
  Receive Date: 20110328
  Receipt Date: 20110327
  Transmission Date: 20110831
  Serious: Yes (Other)
  Sender: FDA-Public Use
  Company Number: US-PFIZER INC-2011067595

PATIENT
  Sex: Female
  Weight: 68.027 kg

DRUGS (1)
  1. ZOLOFT [Suspect]
     Indication: DEPRESSION
     Dosage: 50 MG, 1X/DAY
     Route: 048
     Dates: start: 20110311, end: 20110325

REACTIONS (11)
  - INSOMNIA [None]
  - CHEST DISCOMFORT [None]
  - VOMITING [None]
  - PALPITATIONS [None]
  - CHILLS [None]
  - NAUSEA [None]
  - ALOPECIA [None]
  - DECREASED APPETITE [None]
  - DIZZINESS [None]
  - WEIGHT DECREASED [None]
  - TREMOR [None]
